FAERS Safety Report 8307387-8 (Version None)
Quarter: 2012Q2

REPORT INFORMATION
  Report Type: 
  Country: None (occurrence: None)
  Receive Date: 20120424
  Receipt Date: 20120419
  Transmission Date: 20120825
  Serious: Yes (Hospitalization, Other)
  Sender: FDA-Public Use
  Company Number: JP-BAYER-2012-038792

PATIENT
  Age: 64 Year
  Sex: Male
  Weight: 59 kg

DRUGS (8)
  1. MAGNEVIST [Suspect]
     Indication: MULTIPLE SCLEROSIS
  2. MAGNEVIST [Suspect]
     Indication: NUCLEAR MAGNETIC RESONANCE IMAGING BRAIN
     Dosage: 12 ML, ONCE
     Route: 042
     Dates: start: 20120319, end: 20120319
  3. CLONAZEPAM [Concomitant]
     Dosage: DAILY DOSE 1.5 MG
     Route: 048
  4. PURSENNID [Concomitant]
     Indication: CONSTIPATION
     Dosage: DAILY DOSE 24 MG
     Route: 048
  5. BETASERON [Suspect]
     Indication: MULTIPLE SCLEROSIS
     Dosage: 9.6 MIU, QD
     Route: 058
  6. SELBEX [Concomitant]
     Dosage: DAILY DOSE 150 MG
     Route: 048
  7. VITAMIN B12 [Concomitant]
     Dosage: DAILY DOSE 1500 ?G
     Route: 048
  8. KERATINAMIN [Concomitant]
     Route: 061

REACTIONS (8)
  - ABDOMINAL PAIN [None]
  - CHOLECYSTITIS ACUTE [None]
  - PYREXIA [None]
  - RENAL FAILURE ACUTE [None]
  - GLOMERULAR FILTRATION RATE DECREASED [None]
  - BACK PAIN [None]
  - MULTIPLE SCLEROSIS RELAPSE [None]
  - DIZZINESS [None]
